FAERS Safety Report 18293175 (Version 1)
Quarter: 2020Q3

REPORT INFORMATION
  Report Type: Spontaneous
  Country: US (occurrence: US)
  Receive Date: 20200921
  Receipt Date: 20200921
  Transmission Date: 20201103
  Serious: Yes (Other)
  Sender: FDA-Public Use
  Company Number: US-LEXICON PHARMACEUTICALS, INC-20-1606-00768

PATIENT
  Age: 79 Year
  Sex: Female

DRUGS (3)
  1. LUTATHERA [Concomitant]
     Active Substance: LUTETIUM OXODOTREOTIDE LU-177
     Dosage: EVERY OTHER MONTH
  2. XERMELO [Suspect]
     Active Substance: TELOTRISTAT ETHYL
     Indication: CARCINOID SYNDROME
     Dates: start: 20200220
  3. LANREOTIDE [Concomitant]
     Active Substance: LANREOTIDE

REACTIONS (2)
  - Drug effect less than expected [Not Recovered/Not Resolved]
  - Radiotherapy [Not Recovered/Not Resolved]
